FAERS Safety Report 7345747-2 (Version None)
Quarter: 2011Q1

REPORT INFORMATION
  Report Type: 
  Country: None (occurrence: None)
  Receive Date: 20110308
  Receipt Date: 20110308
  Transmission Date: 20110831
  Serious: Yes (Other)
  Sender: FDA-Public Use
  Company Number: None

PATIENT
  Age: 38 Year
  Sex: Female
  Weight: 56.246 kg

DRUGS (5)
  1. PRISTIQ [Concomitant]
  2. LAMICTAL [Concomitant]
  3. CALCIUM MULTIVITAMIN [Concomitant]
  4. SAPHRIS [Suspect]
     Indication: BIPOLAR DISORDER
     Dosage: 5 MG SL
     Route: 060
     Dates: start: 20110303, end: 20110303
  5. ABILIFY [Concomitant]

REACTIONS (4)
  - VERTIGO [None]
  - ALTERED STATE OF CONSCIOUSNESS [None]
  - NAUSEA [None]
  - VOMITING [None]
